FAERS Safety Report 24114260 (Version 1)
Quarter: 2024Q3

REPORT INFORMATION
  Report Type: Spontaneous
  Country: US (occurrence: US)
  Receive Date: 20240720
  Receipt Date: 20240720
  Transmission Date: 20241017
  Serious: No
  Sender: TAKEDA
  Company Number: US-TAKEDA-2024TUS070140

PATIENT
  Age: 44 Year
  Sex: Female
  Weight: 66 kg

DRUGS (3)
  1. FRUZAQLA [Suspect]
     Active Substance: FRUQUINTINIB
     Indication: Colon cancer
     Dosage: 5 MILLIGRAM, QD
     Route: 065
     Dates: start: 20240311
  2. ESTRADIOL [Concomitant]
     Active Substance: ESTRADIOL
     Dosage: 2 MILLIGRAM
     Route: 065
  3. PROGESTERONE [Concomitant]
     Active Substance: PROGESTERONE
     Dosage: 200 MILLIGRAM
     Route: 065

REACTIONS (3)
  - Discomfort [Unknown]
  - Vaginal infection [Unknown]
  - Diarrhoea [Unknown]
